FAERS Safety Report 7828904-8 (Version None)
Quarter: 2011Q4

REPORT INFORMATION
  Report Type: 
  Country: None (occurrence: None)
  Receive Date: 20111020
  Receipt Date: 20100827
  Transmission Date: 20120403
  Serious: No
  Sender: FDA-Public Use
  Company Number: US-BAYER-201031975NA

PATIENT
  Sex: Female

DRUGS (8)
  1. CIPROFLOXACIN [Suspect]
     Indication: SINUSITIS
     Dosage: 500 MG, BID
     Route: 048
     Dates: start: 20100820, end: 20100823
  2. ENALAPRIL MALEATE [Concomitant]
  3. VITAMIN TAB [Concomitant]
  4. LEVOTHYROXINE SODIUM [Concomitant]
  5. METOPROLOL TARTRATE [Concomitant]
  6. ALODINE VESCOLATE [Concomitant]
  7. CIPROFLOXACIN [Suspect]
     Indication: CYSTITIS
  8. ASPIRIN [Concomitant]

REACTIONS (1)
  - RASH [None]
